FAERS Safety Report 5637245-9 (Version None)
Quarter: 2008Q1

REPORT INFORMATION
  Report Type: 
  Country: None (occurrence: None)
  Receive Date: 20080225
  Receipt Date: 20070601
  Transmission Date: 20080703
  Serious: Yes (Hospitalization)
  Sender: FDA-Public Use
  Company Number: US-BRISTOL-MYERS SQUIBB COMPANY-13800768

PATIENT
  Age: 26 Year
  Sex: Male
  Weight: 118 kg

DRUGS (1)
  1. KENALOG [Suspect]
     Indication: BACK PAIN
     Dates: start: 20060901, end: 20061101

REACTIONS (3)
  - ADRENAL INSUFFICIENCY [None]
  - CUSHING'S SYNDROME [None]
  - HYPERTENSION [None]
